FAERS Safety Report 9291073 (Version 3)
Quarter: 2014Q1

REPORT INFORMATION
  Report Type: Spontaneous
  Country: AU (occurrence: None)
  Receive Date: 20130513
  Receipt Date: 20140224
  Transmission Date: 20141002
  Serious: Yes (Other)
  Sender: FDA-Public Use
  Company Number: AUR-APL-2013-03924

PATIENT
  Age: 66 Year
  Sex: Male

DRUGS (5)
  1. RAMIPRIL (RAMIPRIL) [Suspect]
     Indication: PRODUCT USED FOR UNKNOWN INDICATION
     Route: 048
  2. ROSUVASTATIN (ROSUVASTATIN) [Suspect]
     Indication: PRODUCT USED FOR UNKNOWN INDICATION
     Route: 048
  3. TOPIRAMATE (TOPIRAMATE) [Suspect]
     Indication: PRODUCT USED FOR UNKNOWN INDICATION
     Route: 048
  4. PHENYTOIN (PHENYTON) [Concomitant]
  5. DIAZEPAM (DIAZEPAM) [Concomitant]

REACTIONS (7)
  - Lipase increased [None]
  - White blood cell count increased [None]
  - Hypotension [None]
  - Pancreatic duct dilatation [None]
  - Renal cyst [None]
  - Hepatomegaly [None]
  - Pancreatic enlargement [None]
